FAERS Safety Report 7721268-X (Version None)
Quarter: 2011Q3

REPORT INFORMATION
  Report Type: 
  Country: None (occurrence: None)
  Receive Date: 20110830
  Receipt Date: 20110830
  Transmission Date: 20111222
  Serious: No
  Sender: FDA-Public Use
  Company Number: None

PATIENT

DRUGS (1)
  1. TEMAZEPAM [Suspect]

REACTIONS (5)
  - ABNORMAL BEHAVIOUR [None]
  - HYPOTENSION [None]
  - PRODUCT SUBSTITUTION ISSUE [None]
  - DEHYDRATION [None]
  - LOSS OF CONSCIOUSNESS [None]
